FAERS Safety Report 4730285-3 (Version None)
Quarter: 2005Q3

REPORT INFORMATION
  Report Type: 
  Country: None (occurrence: None)
  Receive Date: 20050729
  Receipt Date: 20050729
  Transmission Date: 20060218
  Serious: Yes (Other)
  Sender: FDA-Public Use
  Company Number: None

PATIENT
  Age: 53 Year
  Sex: Female
  Weight: 90.7194 kg

DRUGS (2)
  1. ASACOL [Suspect]
     Indication: COLITIS COLLAGENOUS
     Dosage: 2 TABS TID ORAL
     Route: 048
     Dates: start: 20050721, end: 20050724
  2. MEDROL [Concomitant]

REACTIONS (4)
  - FATIGUE [None]
  - FEELING ABNORMAL [None]
  - NECK PAIN [None]
  - SHOULDER PAIN [None]
